FAERS Safety Report 4334607-7 (Version None)
Quarter: 2004Q2

REPORT INFORMATION
  Report Type: 
  Country: None (occurrence: None)
  Receive Date: 20040407
  Receipt Date: 20040324
  Transmission Date: 20050107
  Serious: Yes (Other)
  Sender: FDA-Public Use
  Company Number: PH-MERCK-0403PHL00010

PATIENT
  Age: 80 Year
  Sex: Female

DRUGS (3)
  1. [THERAPY UNSPECIFIED] [Concomitant]
     Indication: HYPERTENSION
     Route: 048
  2. FOSAMAX [Suspect]
     Route: 048
     Dates: start: 19990101, end: 20040301
  3. CALCIUM (UNSPECIFIED) [Concomitant]
     Route: 065

REACTIONS (3)
  - COMPRESSION FRACTURE [None]
  - DRUG INEFFECTIVE [None]
  - OSTEOPOROSIS [None]
